FAERS Safety Report 8314045-2 (Version None)
Quarter: 2012Q2

REPORT INFORMATION
  Report Type: 
  Country: None (occurrence: None)
  Receive Date: 20120426
  Receipt Date: 20120420
  Transmission Date: 20120825
  Serious: Yes (Hospitalization)
  Sender: FDA-Public Use
  Company Number: US-BAYER-2012-039336

PATIENT
  Age: 53 Year
  Sex: Female

DRUGS (2)
  1. CORTICOSTEROIDS [Concomitant]
  2. BETASERON [Suspect]
     Indication: PRODUCT USED FOR UNKNOWN INDICATION
     Dosage: UNK
     Dates: start: 20120223, end: 20120101

REACTIONS (7)
  - PYREXIA [None]
  - OCULAR DISCOMFORT [None]
  - INFLUENZA LIKE ILLNESS [None]
  - TREMOR [None]
  - MULTIPLE SCLEROSIS [None]
  - HEADACHE [None]
  - MULTIPLE SCLEROSIS RELAPSE [None]
